FAERS Safety Report 10788780 (Version 1)
Quarter: 2015Q1

REPORT INFORMATION
  Report Type: Spontaneous
  Country: US (occurrence: US)
  Receive Date: 20150212
  Receipt Date: 20150212
  Transmission Date: 20150721
  Serious: No
  Sender: FDA-Public Use
  Company Number: US-GLAXOSMITHKLINE-A1059984A

PATIENT

DRUGS (6)
  1. TRAMADOL [Concomitant]
     Active Substance: TRAMADOL
  2. XANAX [Concomitant]
     Active Substance: ALPRAZOLAM
  3. NICORETTE [Suspect]
     Active Substance: NICOTINE
     Indication: EX-TOBACCO USER
  4. UNKNOWN SLEEPING PILL [Concomitant]
     Active Substance: UNSPECIFIED INGREDIENT
  5. UNSPECIFIED MEDICATION [Suspect]
     Active Substance: UNSPECIFIED INGREDIENT
  6. DIGOXIN. [Concomitant]
     Active Substance: DIGOXIN

REACTIONS (6)
  - Condition aggravated [Not Recovered/Not Resolved]
  - Drug administration error [Unknown]
  - Decreased appetite [Not Recovered/Not Resolved]
  - Anger [Not Recovered/Not Resolved]
  - Mood altered [Not Recovered/Not Resolved]
  - Middle insomnia [Not Recovered/Not Resolved]
